FAERS Safety Report 5880632-4 (Version None)
Quarter: 2008Q3

REPORT INFORMATION
  Report Type: 
  Country: None (occurrence: None)
  Receive Date: 20080912
  Receipt Date: 20080606
  Transmission Date: 20090109
  Serious: No
  Sender: FDA-Public Use
  Company Number: US-ABBOTT-08P-163-0455869-00

PATIENT
  Sex: Male
  Weight: 122.72 kg

DRUGS (14)
  1. HUMIRA [Suspect]
     Indication: CROHN'S DISEASE
     Route: 058
     Dates: start: 20071009, end: 20071009
  2. HUMIRA [Suspect]
     Route: 058
  3. HUMIRA [Suspect]
     Route: 058
  4. AZATHIOPRINE [Suspect]
     Indication: CROHN'S DISEASE
     Route: 048
     Dates: end: 20071201
  5. AZATHIOPRINE [Suspect]
     Route: 048
     Dates: start: 20071201
  6. PANTOPRAZOLE [Concomitant]
     Indication: CROHN'S DISEASE
     Route: 048
     Dates: start: 20040101
  7. VICODIN [Concomitant]
     Indication: PAIN
     Dosage: 4-5 DAILY
     Route: 048
     Dates: start: 20070901
  8. VICODIN [Concomitant]
     Route: 048
     Dates: start: 20040101, end: 20070901
  9. MULTI-VITAMINS [Concomitant]
     Indication: VITAMIN SUPPLEMENTATION
     Route: 048
  10. CALCIUM WITH VITAMIN D [Concomitant]
     Indication: MINERAL SUPPLEMENTATION
     Dosage: PROBABLY 500-600 MG ONE PILL TWICE DAILY
     Route: 048
  11. IRON [Concomitant]
     Indication: ANAEMIA
     Dosage: OTC , THREE PILLS A DAY
     Route: 048
     Dates: start: 20060601
  12. PREDNISONE ACETATE [Concomitant]
     Indication: CROHN'S DISEASE
     Route: 048
     Dates: start: 20040101
  13. RISEDRONATE SODIUM [Concomitant]
     Indication: CROHN'S DISEASE
     Route: 048
     Dates: start: 20061001
  14. TEMAZEPAM [Concomitant]
     Indication: SLEEP DISORDER THERAPY
     Dosage: AT BEDTIME
     Route: 048
     Dates: start: 20061001

REACTIONS (5)
  - ABDOMINAL PAIN LOWER [None]
  - CHILLS [None]
  - LABORATORY TEST ABNORMAL [None]
  - RECTAL HAEMORRHAGE [None]
  - VOMITING [None]
